FAERS Safety Report 5286239-4 (Version None)
Quarter: 2007Q2

REPORT INFORMATION
  Report Type: 
  Country: None (occurrence: None)
  Receive Date: 20070404
  Receipt Date: 20070330
  Transmission Date: 20071010
  Serious: Yes (Other)
  Sender: FDA-Public Use
  Company Number: US-BRISTOL-MYERS SQUIBB COMPANY-13736574

PATIENT
  Sex: Female

DRUGS (1)
  1. MAXIPIME [Suspect]
     Indication: INFECTION

REACTIONS (1)
  - NERVOUS SYSTEM DISORDER [None]
